FAERS Safety Report 6274788-1 (Version None)
Quarter: 2009Q3

REPORT INFORMATION
  Report Type: 
  Country: None (occurrence: None)
  Receive Date: 20090721
  Receipt Date: 20090708
  Transmission Date: 20100115
  Serious: Yes (Other)
  Sender: FDA-Public Use
  Company Number: US-TEVA-194122USA

PATIENT
  Age: 48 Year
  Sex: Female

DRUGS (11)
  1. PROPOFOL [Suspect]
     Indication: ENDOSCOPY
     Route: 042
     Dates: start: 20090504, end: 20090504
  2. PROPOFOL [Suspect]
     Indication: GENERAL ANAESTHESIA
     Dosage: 120 MCG/KG/MIN
     Route: 041
     Dates: start: 20090504, end: 20090504
  3. PROPOFOL [Suspect]
     Indication: OESOPHAGEAL DILATATION
  4. MIDAZOLAM HCL [Suspect]
     Indication: ANAESTHETIC PREMEDICATION
     Route: 042
     Dates: start: 20090504, end: 20090504
  5. GLYCOPYRROLATE INJECTION, USP [Suspect]
     Indication: ANAESTHETIC PREMEDICATION
     Route: 042
     Dates: start: 20090504, end: 20090504
  6. LIDOCAINE [Suspect]
     Indication: GENERAL ANAESTHESIA
     Route: 042
     Dates: start: 20090504, end: 20090504
  7. LIDOCAINE [Suspect]
     Indication: ENDOSCOPY
  8. LIDOCAINE [Suspect]
     Indication: OESOPHAGEAL DILATATION
  9. FENTANYL-100 [Suspect]
     Indication: GENERAL ANAESTHESIA
     Route: 042
     Dates: start: 20090504, end: 20090504
  10. FENTANYL-100 [Suspect]
     Indication: ENDOSCOPY
  11. FENTANYL-100 [Suspect]
     Indication: OESOPHAGEAL DILATATION

REACTIONS (5)
  - FEELING ABNORMAL [None]
  - HEADACHE [None]
  - PAIN IN JAW [None]
  - PRODUCT CONTAMINATION MICROBIAL [None]
  - PYREXIA [None]
